FAERS Safety Report 6688021-X (Version None)
Quarter: 2010Q2

REPORT INFORMATION
  Report Type: 
  Country: None (occurrence: None)
  Receive Date: 20100420
  Receipt Date: 20100412
  Transmission Date: 20101027
  Serious: Yes (Other)
  Sender: FDA-Public Use
  Company Number: US-ASTRAZENECA-2009SE13126

PATIENT
  Age: 24411 Day
  Sex: Male
  Weight: 122.5 kg

DRUGS (9)
  1. SEROQUEL [Suspect]
     Route: 048
     Dates: start: 20041105
  2. NEXIUM [Concomitant]
     Dates: start: 20041105
  3. HYDROCHLOROTHIAZIDE [Concomitant]
     Dates: start: 20041105
  4. AMBIEN CR [Concomitant]
     Dates: start: 20041105
  5. DIPHENHYDRAMINE HYDROCHLORIDE [Concomitant]
     Dates: start: 20041105
  6. EFFEXOR [Concomitant]
     Dates: start: 20041105
  7. DOXEPIN HCL [Concomitant]
     Dates: start: 20041207
  8. TRAZODONE HCL [Concomitant]
  9. PROPRANOLOL [Concomitant]

REACTIONS (3)
  - DIABETIC NEUROPATHY [None]
  - RESTLESS LEGS SYNDROME [None]
  - TYPE 2 DIABETES MELLITUS [None]
